FAERS Safety Report 8304462-9 (Version None)
Quarter: 2012Q2

REPORT INFORMATION
  Report Type: 
  Country: None (occurrence: None)
  Receive Date: 20120423
  Receipt Date: 20120416
  Transmission Date: 20120825
  Serious: Yes (Life-Threatening, Hospitalization)
  Sender: FDA-Public Use
  Company Number: DE-PFIZER INC-2012093236

PATIENT
  Age: 71 Year
  Sex: Male
  Weight: 103 kg

DRUGS (4)
  1. VANCOMYCIN HCL [Suspect]
  2. IMIPENEM [Suspect]
  3. CEFTRIAXONE [Suspect]
  4. MICAFUNGIN [Suspect]

REACTIONS (1)
  - SUBACUTE HEPATIC FAILURE [None]
